FAERS Safety Report 13162669 (Version 2)
Quarter: 2017Q1

REPORT INFORMATION
  Report Type: Spontaneous
  Country: US (occurrence: US)
  Receive Date: 20170130
  Receipt Date: 20170307
  Transmission Date: 20170428
  Serious: No
  Sender: FDA-Public Use
  Company Number: PHEH2017US002527

PATIENT
  Age: 77 Year
  Sex: Female

DRUGS (3)
  1. CAPECITABINE. [Concomitant]
     Active Substance: CAPECITABINE
     Indication: PRODUCT USED FOR UNKNOWN INDICATION
     Route: 065
  2. TYKERB [Suspect]
     Active Substance: LAPATINIB DITOSYLATE
     Indication: BREAST CANCER FEMALE
     Dosage: 125 MG, BID
     Route: 048
     Dates: start: 20161228
  3. LEVAQUIN [Concomitant]
     Active Substance: LEVOFLOXACIN
     Indication: PRODUCT USED FOR UNKNOWN INDICATION
     Dosage: 500 MG, UNK
     Route: 065

REACTIONS (11)
  - Skin discolouration [Unknown]
  - Peripheral swelling [Unknown]
  - Rash [Recovered/Resolved]
  - Diarrhoea [Unknown]
  - Joint swelling [Unknown]
  - Nail disorder [Unknown]
  - Pruritus [Recovered/Resolved]
  - Ligament sprain [Unknown]
  - Oedema peripheral [Unknown]
  - Skin fissures [Unknown]
  - Palmar-plantar erythrodysaesthesia syndrome [Not Recovered/Not Resolved]

NARRATIVE: CASE EVENT DATE: 20170119
